FAERS Safety Report 8536355-6 (Version None)
Quarter: 2012Q3

REPORT INFORMATION
  Report Type: 
  Country: None (occurrence: None)
  Receive Date: 20120725
  Receipt Date: 20120713
  Transmission Date: 20120928
  Serious: Yes (Hospitalization)
  Sender: FDA-Public Use
  Company Number: FR-ROCHE-1088448

PATIENT
  Sex: Female

DRUGS (14)
  1. CITALOPRAM [Concomitant]
  2. EXELON [Concomitant]
  3. HYDROCORTISONE [Concomitant]
  4. ACETAMINOPHEN [Concomitant]
  5. CALCIUM HEPARIN [Concomitant]
  6. FORTRANS [Concomitant]
  7. ROCEPHIN [Suspect]
     Indication: LUNG INFECTION
     Route: 042
     Dates: start: 20120531, end: 20120611
  8. FLAGYL [Suspect]
     Indication: LUNG INFECTION
     Route: 042
     Dates: start: 20120531, end: 20120611
  9. CALCIUM CARBONATE [Concomitant]
  10. STRUCTOKABIVEN [Concomitant]
  11. PANTOPRAZOLE [Concomitant]
  12. MEMANTINE HYDROCHLORIDE [Concomitant]
  13. FLUDROCORTISONE ACETATE [Concomitant]
  14. POTASSIUM CHLORIDE [Concomitant]

REACTIONS (1)
  - ACUTE GENERALISED EXANTHEMATOUS PUSTULOSIS [None]
